FAERS Safety Report 11704304 (Version 3)
Quarter: 2021Q4

REPORT INFORMATION
  Report Type: Spontaneous
  Country: BR (occurrence: BR)
  Receive Date: 20151106
  Receipt Date: 20211231
  Transmission Date: 20220303
  Serious: Yes (Death, Other)
  Sender: FDA-Public Use
  Company Number: BR-ASTELLAS-2015US041262

PATIENT
  Age: 65 Year

DRUGS (1)
  1. AMPHOTERICIN B [Suspect]
     Active Substance: AMPHOTERICIN B
     Indication: Visceral leishmaniasis
     Dosage: UNK, UNKNOWN FREQ.
     Route: 065

REACTIONS (3)
  - Treatment failure [Fatal]
  - Splenectomy [Unknown]
  - Therapeutic product effect incomplete [Not Recovered/Not Resolved]
